FAERS Safety Report 24224611 (Version 1)
Quarter: 2024Q3

REPORT INFORMATION
  Report Type: Spontaneous
  Country: CN (occurrence: CN)
  Receive Date: 20240819
  Receipt Date: 20240819
  Transmission Date: 20241016
  Serious: Yes (Hospitalization, Other)
  Sender: MERCK
  Company Number: CN-009507513-2408CHN005824

PATIENT
  Age: 46 Year
  Sex: Female
  Weight: 44 kg

DRUGS (1)
  1. KEYTRUDA [Suspect]
     Active Substance: PEMBROLIZUMAB
     Indication: Metastases to lung
     Dosage: 200 MG, ONCE
     Route: 041
     Dates: start: 20240806, end: 20240806

REACTIONS (1)
  - Myelosuppression [Recovering/Resolving]

NARRATIVE: CASE EVENT DATE: 20240812
